FAERS Safety Report 15206006 (Version 1)
Quarter: 2018Q3

REPORT INFORMATION
  Report Type: Spontaneous
  Country: US (occurrence: US)
  Receive Date: 20180727
  Receipt Date: 20180727
  Transmission Date: 20181010
  Serious: Yes (Hospitalization)
  Sender: FDA-Public Use
  Company Number: US-INCYTE CORPORATION-2018IN007368

PATIENT

DRUGS (1)
  1. JAKAFI [Suspect]
     Active Substance: RUXOLITINIB
     Indication: BLOOD DISORDER
     Dosage: 15 MG, UNK
     Route: 048
     Dates: start: 20180628

REACTIONS (7)
  - Disease risk factor [Unknown]
  - Off label use [Unknown]
  - Ligament disorder [Unknown]
  - Synovial disorder [Unknown]
  - Palpitations [Unknown]
  - Peripheral swelling [Unknown]
  - Gait inability [Unknown]

NARRATIVE: CASE EVENT DATE: 20180628
